FAERS Safety Report 20592005 (Version 7)
Quarter: 2024Q4

REPORT INFORMATION
  Report Type: Spontaneous
  Country: US (occurrence: US)
  Receive Date: 20220314
  Receipt Date: 20241016
  Transmission Date: 20250114
  Serious: Yes (Life-Threatening, Hospitalization, Other)
  Sender: CSL BEHRING
  Company Number: US-BEH-2022143134

PATIENT
  Age: 53 Year
  Sex: Female
  Weight: 65 kg

DRUGS (12)
  1. HAEGARDA [Suspect]
     Active Substance: HUMAN C1-ESTERASE INHIBITOR
     Indication: Hereditary angioedema
     Dosage: 1680 INTERNATIONAL UNIT, BIW
     Route: 058
     Dates: start: 202110
  2. HAEGARDA [Suspect]
     Active Substance: HUMAN C1-ESTERASE INHIBITOR
     Indication: Prophylaxis
  3. HAEGARDA [Suspect]
     Active Substance: HUMAN C1-ESTERASE INHIBITOR
     Indication: Hereditary angioedema
     Dosage: 3000 INTERNATIONAL UNIT, BIW
     Route: 058
     Dates: start: 202110
  4. HAEGARDA [Suspect]
     Active Substance: HUMAN C1-ESTERASE INHIBITOR
     Indication: Prophylaxis
  5. BERINERT [Suspect]
     Active Substance: HUMAN C1-ESTERASE INHIBITOR
     Indication: Hereditary angioedema
     Dosage: 500 INTERNATIONAL UNIT
     Route: 042
  6. BERINERT [Suspect]
     Active Substance: HUMAN C1-ESTERASE INHIBITOR
     Indication: Hereditary angioedema
     Dosage: 500 INTERNATIONAL UNIT
     Route: 042
  7. BERINERT [Suspect]
     Active Substance: HUMAN C1-ESTERASE INHIBITOR
     Indication: Hereditary angioedema
     Dosage: 1300 INTERNATIONAL UNIT, PRN
     Route: 042
  8. BERINERT [Suspect]
     Active Substance: HUMAN C1-ESTERASE INHIBITOR
     Indication: Hereditary angioedema
     Dosage: 1300 INTERNATIONAL UNIT, PRN
     Route: 042
  9. BERINERT [Suspect]
     Active Substance: HUMAN C1-ESTERASE INHIBITOR
     Dosage: 500 INTERNATIONAL UNIT
     Route: 016
  10. BERINERT [Suspect]
     Active Substance: HUMAN C1-ESTERASE INHIBITOR
     Dosage: 500 INTERNATIONAL UNIT
     Route: 016
  11. BERINERT [Suspect]
     Active Substance: HUMAN C1-ESTERASE INHIBITOR
     Dosage: 500 INTERNATIONAL UNIT
     Route: 065
  12. BERINERT [Suspect]
     Active Substance: HUMAN C1-ESTERASE INHIBITOR
     Dosage: 500 INTERNATIONAL UNIT
     Route: 065

REACTIONS (19)
  - Hereditary angioedema [Not Recovered/Not Resolved]
  - Loss of consciousness [Not Recovered/Not Resolved]
  - Hereditary angioedema [Recovered/Resolved]
  - Hereditary angioedema [Recovered/Resolved]
  - Hereditary angioedema [Recovered/Resolved]
  - Hereditary angioedema [Recovered/Resolved]
  - Hereditary angioedema [Recovered/Resolved]
  - Vertigo [Recovered/Resolved]
  - Hereditary angioedema [Recovered/Resolved]
  - Headache [Recovered/Resolved]
  - Hereditary angioedema [Recovered/Resolved]
  - Dyspepsia [Recovered/Resolved]
  - Hereditary angioedema [Recovered/Resolved]
  - Migraine [Recovered/Resolved]
  - Hereditary angioedema [Unknown]
  - Stress [Unknown]
  - Nasopharyngitis [Unknown]
  - Sinus disorder [Unknown]
  - Hospitalisation [Unknown]

NARRATIVE: CASE EVENT DATE: 20220101
